FAERS Safety Report 13055364 (Version 1)
Quarter: 2016Q4

REPORT INFORMATION
  Report Type: Spontaneous
  Country: US (occurrence: US)
  Receive Date: 20161222
  Receipt Date: 20161222
  Transmission Date: 20170207
  Serious: Yes (Death, Other)
  Sender: FDA-Public Use
  Company Number: US-PFIZER INC-2016588011

PATIENT
  Sex: Male

DRUGS (3)
  1. DEXTROMETHORPHAN HBR [Suspect]
     Active Substance: DEXTROMETHORPHAN HYDROBROMIDE
     Dosage: UNK
  2. OXYCODONE [Suspect]
     Active Substance: OXYCODONE
     Dosage: UNK
  3. HEROIN [Suspect]
     Active Substance: DIACETYLMORPHINE
     Dosage: UNK

REACTIONS (4)
  - Drug dependence [Unknown]
  - Drug abuse [Fatal]
  - Accidental overdose [Fatal]
  - Coma [Unknown]

NARRATIVE: CASE EVENT DATE: 20150309
